FAERS Safety Report 25172374 (Version 3)
Quarter: 2025Q2

REPORT INFORMATION
  Report Type: Report from Study
  Country: CA (occurrence: CA)
  Receive Date: 20250408
  Receipt Date: 20250514
  Transmission Date: 20250716
  Serious: Yes (Other)
  Sender: JOHNSON AND JOHNSON
  Company Number: CA-JNJFOC-20250401063

PATIENT
  Age: 49 Year
  Sex: Male
  Weight: 136 kg

DRUGS (2)
  1. SIMPONI [Suspect]
     Active Substance: GOLIMUMAB
     Indication: Rheumatoid arthritis
     Route: 058
     Dates: start: 20250320
  2. SIMPONI [Suspect]
     Active Substance: GOLIMUMAB
     Route: 058

REACTIONS (8)
  - Rheumatoid arthritis [Recovering/Resolving]
  - Elbow operation [Unknown]
  - Productive cough [Not Recovered/Not Resolved]
  - Oropharyngeal pain [Unknown]
  - Infection [Unknown]
  - Nasopharyngitis [Unknown]
  - Bronchitis [Not Recovered/Not Resolved]
  - Sinusitis [Not Recovered/Not Resolved]

NARRATIVE: CASE EVENT DATE: 20250301
